FAERS Safety Report 6702498-2 (Version None)
Quarter: 2010Q2

REPORT INFORMATION
  Report Type: 
  Country: None (occurrence: None)
  Receive Date: 20100429
  Receipt Date: 20100427
  Transmission Date: 20101027
  Serious: Yes (Hospitalization)
  Sender: FDA-Public Use
  Company Number: R0008174A

PATIENT
  Age: 67 Year
  Sex: Female

DRUGS (2)
  1. BLINDED VACCINE [Suspect]
     Route: 030
     Dates: start: 20091013, end: 20091013
  2. ERYTHROMYCIN [Suspect]
     Indication: CHOLECYSTECTOMY
     Dosage: 250MG PER DAY
     Route: 048
     Dates: start: 20091202, end: 20091209

REACTIONS (2)
  - IMPAIRED GASTRIC EMPTYING [None]
  - RASH [None]
